FAERS Safety Report 12048315 (Version 2)
Quarter: 2016Q2

REPORT INFORMATION
  Report Type: Spontaneous
  Country: US (occurrence: US)
  Receive Date: 20160209
  Receipt Date: 20160616
  Transmission Date: 20160815
  Serious: Yes (Other)
  Sender: FDA-Public Use
  Company Number: US-009507513-1602USA002587

PATIENT
  Age: 61 Year
  Sex: Male

DRUGS (10)
  1. PEGINTRON [Suspect]
     Active Substance: PEGINTERFERON ALFA-2B
     Indication: RENAL TRANSPLANT
     Dosage: UNK
  2. EPOETIN [Concomitant]
     Active Substance: ERYTHROPOIETIN
     Dosage: UNK, QW
     Dates: start: 2014
  3. EPOETIN [Concomitant]
     Active Substance: ERYTHROPOIETIN
     Dosage: UNK, QM
     Dates: end: 2014
  4. SOFOSBUVIR [Suspect]
     Active Substance: SOFOSBUVIR
     Indication: RENAL TRANSPLANT
  5. REBETOL [Suspect]
     Active Substance: RIBAVIRIN
     Dosage: 400 MG, BID
     Route: 048
     Dates: start: 2014, end: 2014
  6. REBETOL [Suspect]
     Active Substance: RIBAVIRIN
     Indication: RENAL TRANSPLANT
     Dosage: 600 MG, BID
     Route: 048
     Dates: start: 2014, end: 2014
  7. REBETOL [Suspect]
     Active Substance: RIBAVIRIN
     Indication: HEPATITIS C
     Dosage: UNK
     Route: 048
  8. REBETOL [Suspect]
     Active Substance: RIBAVIRIN
     Dosage: 600MG IN THE MORNING AND 400 IN THE EVENING AT WEEK 6
     Route: 048
     Dates: start: 2014, end: 2014
  9. SOFOSBUVIR [Suspect]
     Active Substance: SOFOSBUVIR
     Indication: HEPATITIS C
     Dosage: 400 MG, QD
  10. PEGINTRON [Suspect]
     Active Substance: PEGINTERFERON ALFA-2B
     Indication: HEPATITIS C
     Dosage: 180 MICROGRAM, QW
     Route: 058
     Dates: start: 2014, end: 2014

REACTIONS (3)
  - Leukopenia [Unknown]
  - Anaemia [Unknown]
  - Anaemia [Unknown]

NARRATIVE: CASE EVENT DATE: 2014
